FAERS Safety Report 7121868-4 (Version None)
Quarter: 2010Q4

REPORT INFORMATION
  Report Type: 
  Country: None (occurrence: None)
  Receive Date: 20101124
  Receipt Date: 20101116
  Transmission Date: 20110411
  Serious: Yes (Death, Other)
  Sender: FDA-Public Use
  Company Number: CH-ROCHE-742389

PATIENT
  Sex: Female

DRUGS (1)
  1. AVASTIN [Suspect]
     Indication: BREAST CANCER
     Route: 042

REACTIONS (2)
  - CEREBRAL HAEMORRHAGE [None]
  - MALIGNANT NEOPLASM PROGRESSION [None]
